FAERS Safety Report 5089886-8 (Version None)
Quarter: 2006Q3

REPORT INFORMATION
  Report Type: 
  Country: None (occurrence: None)
  Receive Date: 20060823
  Receipt Date: 20060804
  Transmission Date: 20061208
  Serious: Yes (Hospitalization)
  Sender: FDA-Public Use
  Company Number: M-06-0644

PATIENT
  Age: 69 Year
  Sex: Male

DRUGS (7)
  1. PACERONE [Suspect]
     Indication: HEART RATE IRREGULAR
     Dosage: 200 MG, QD, PO
     Route: 048
     Dates: start: 20060201
  2. PACERONE [Suspect]
     Dosage: 200 MG, QD, PO
     Route: 048
     Dates: start: 20010101, end: 20060101
  3. KLOR-CON [Concomitant]
  4. LEVOTHYROXINE SODIUM [Concomitant]
  5. TRIAMTERENE AND HYDROCHLOROTHIAZIDE [Concomitant]
  6. ISOSORBIDE DINITRATE [Concomitant]
  7. ATENOLOL [Concomitant]

REACTIONS (6)
  - ANOREXIA [None]
  - BLOOD PRESSURE DECREASED [None]
  - DYSPNOEA [None]
  - GASTRIC HAEMORRHAGE [None]
  - HYPOTRICHOSIS [None]
  - PHOTOPHOBIA [None]
